FAERS Safety Report 15316803 (Version 2)
Quarter: 2018Q3

REPORT INFORMATION
  Report Type: Report from Study
  Country: US (occurrence: US)
  Receive Date: 20180824
  Receipt Date: 20180914
  Transmission Date: 20181010
  Serious: Yes (Other)
  Sender: FDA-Public Use
  Company Number: US-ALEXION PHARMACEUTICALS INC.-A201811015

PATIENT
  Sex: Female

DRUGS (1)
  1. SOLIRIS [Suspect]
     Active Substance: ECULIZUMAB
     Indication: PRODUCT USED FOR UNKNOWN INDICATION
     Dosage: UNK
     Route: 065

REACTIONS (12)
  - Drug ineffective [Unknown]
  - Facial paresis [Unknown]
  - Dyspnoea [Unknown]
  - Dry eye [Unknown]
  - Asthenia [Unknown]
  - General physical health deterioration [Unknown]
  - Thirst [Unknown]
  - Dysarthria [Unknown]
  - Extraocular muscle paresis [Unknown]
  - Diarrhoea [Unknown]
  - Rhinorrhoea [Unknown]
  - Fatigue [Unknown]
